FAERS Safety Report 4719274-2 (Version None)
Quarter: 2005Q3

REPORT INFORMATION
  Report Type: 
  Country: None (occurrence: None)
  Receive Date: 20050721
  Receipt Date: 20041201
  Transmission Date: 20060218
  Serious: No
  Sender: FDA-Public Use
  Company Number: US-BRISTOL-MYERS SQUIBB COMPANY-12783031

PATIENT
  Age: 48 Year
  Sex: Female

DRUGS (1)
  1. MAXIPIME [Suspect]
     Route: 010
     Dates: start: 20041101

REACTIONS (1)
  - BLOOD PRESSURE INCREASED [None]
